FAERS Safety Report 7960957-9 (Version None)
Quarter: 2011Q4

REPORT INFORMATION
  Report Type: 
  Country: None (occurrence: None)
  Receive Date: 20111202
  Receipt Date: 20111116
  Transmission Date: 20120403
  Serious: Yes (Other)
  Sender: FDA-Public Use
  Company Number: 2009JP005556

PATIENT
  Age: 23 Year
  Sex: Female
  Weight: 46.3 kg

DRUGS (18)
  1. PANVITAN (VITAMINS NOS) [Concomitant]
  2. PERSANTIN [Concomitant]
  3. ASPIRIN [Concomitant]
  4. GASTER (FAMOTIDINE) ORODISPERSIBLE CR [Concomitant]
  5. SELBEX (TEPRENONE) [Concomitant]
  6. METHYLPREDNISOLONE [Suspect]
     Indication: LUPUS NEPHRITIS
     Dosage: SEE IMAGE
     Route: 048
     Dates: start: 20070825, end: 20070914
  7. METHYLPREDNISOLONE [Suspect]
     Indication: LUPUS NEPHRITIS
     Dosage: SEE IMAGE
     Route: 048
     Dates: start: 20071013, end: 20081219
  8. METHYLPREDNISOLONE [Suspect]
     Indication: LUPUS NEPHRITIS
     Dosage: SEE IMAGE
     Route: 048
     Dates: start: 20070915, end: 20071012
  9. METHYLPREDNISOLONE [Suspect]
     Indication: LUPUS NEPHRITIS
     Dosage: SEE IMAGE
     Route: 048
     Dates: start: 20070915, end: 20071012
  10. METHYLPREDNISOLONE [Suspect]
     Indication: LUPUS NEPHRITIS
     Dosage: SEE IMAGE
     Route: 048
     Dates: start: 20081220
  11. METHYLPREDNISOLONE [Suspect]
     Indication: LUPUS NEPHRITIS
     Dosage: SEE IMAGE
     Route: 048
     Dates: end: 20070824
  12. VIT K CAP [Concomitant]
  13. ALFAROL (ALFACALCIDOL) [Concomitant]
  14. LOSARTAN POTASSIUM [Concomitant]
  15. EPADEL-S (ETHYL ICOSAPENTATE) [Concomitant]
  16. TACROLIMUS [Suspect]
     Indication: LUPUS NEPHRITIS
     Dosage: 2 MG, UNKNOWN/D, ORAL; 3 MG, UNKNOWN/D, ORAL
     Route: 048
     Dates: start: 20070822, end: 20080525
  17. TACROLIMUS [Suspect]
     Indication: LUPUS NEPHRITIS
     Dosage: 2 MG, UNKNOWN/D, ORAL; 3 MG, UNKNOWN/D, ORAL
     Route: 048
     Dates: start: 20080526
  18. BONALON (ALENDRONIC ACID) [Concomitant]

REACTIONS (10)
  - HEADACHE [None]
  - UPPER RESPIRATORY TRACT INFLAMMATION [None]
  - PLANTAR FASCIITIS [None]
  - SPINAL COMPRESSION FRACTURE [None]
  - OSTEOARTHRITIS [None]
  - ABDOMINAL PAIN UPPER [None]
  - URINARY TRACT INFECTION [None]
  - GLAUCOMA [None]
  - PHARYNGITIS [None]
  - NASOPHARYNGITIS [None]
